FAERS Safety Report 23800330 (Version 1)
Quarter: 2024Q2

REPORT INFORMATION
  Report Type: Spontaneous
  Country: AU (occurrence: AU)
  Receive Date: 20240430
  Receipt Date: 20240430
  Transmission Date: 20240715
  Serious: Yes (Other)
  Sender: FDA-Public Use
  Company Number: AU-002147023-NVSC2020AU290871

PATIENT
  Sex: Female

DRUGS (12)
  1. KETOTIFEN [Suspect]
     Active Substance: KETOTIFEN
     Indication: Urticaria pressure
     Dosage: UNK
     Route: 065
  2. KETOTIFEN [Suspect]
     Active Substance: KETOTIFEN
     Indication: Angioedema
  3. KETOTIFEN [Suspect]
     Active Substance: KETOTIFEN
     Indication: Solar urticaria
  4. MONTELUKAST [Suspect]
     Active Substance: MONTELUKAST SODIUM
     Indication: Urticaria pressure
     Dosage: UNK
     Route: 065
  5. MONTELUKAST [Suspect]
     Active Substance: MONTELUKAST SODIUM
     Indication: Angioedema
  6. MONTELUKAST [Suspect]
     Active Substance: MONTELUKAST SODIUM
     Indication: Solar urticaria
  7. XOLAIR [Suspect]
     Active Substance: OMALIZUMAB
     Dosage: 300 MG, QMO
     Route: 058
  8. XOLAIR [Suspect]
     Active Substance: OMALIZUMAB
     Indication: Solar urticaria
     Dosage: 300 MG, EVERY 4 WEEKS
     Route: 065
     Dates: start: 20211206
  9. XOLAIR [Suspect]
     Active Substance: OMALIZUMAB
     Indication: Urticaria pressure
     Dosage: 300 MG, EVERY 4 WEEKS
     Route: 065
     Dates: start: 202008
  10. XOLAIR [Suspect]
     Active Substance: OMALIZUMAB
     Dosage: 300 MG, EVERY 4 WEEKS (STRENGTH: 150 MG)
     Route: 058
  11. XOLAIR [Suspect]
     Active Substance: OMALIZUMAB
     Indication: Angioedema
     Dosage: 300 MG, EVERY 4 WEEKS (STRENGTH: 150 MG)
     Route: 065
     Dates: start: 20200525
  12. XOLAIR [Suspect]
     Active Substance: OMALIZUMAB
     Dosage: UNK
     Route: 058

REACTIONS (9)
  - Angioedema [Unknown]
  - Solar urticaria [Unknown]
  - Urticaria [Unknown]
  - Pruritus [Unknown]
  - Erythema [Unknown]
  - Blood pressure abnormal [Unknown]
  - Photosensitivity reaction [Unknown]
  - Off label use [Unknown]
  - Drug ineffective [Unknown]
